FAERS Safety Report 13232280 (Version 5)
Quarter: 2020Q4

REPORT INFORMATION
  Report Type: Report from Study
  Country: US (occurrence: US)
  Receive Date: 20170214
  Receipt Date: 20201230
  Transmission Date: 20210113
  Serious: Yes (Hospitalization, Other)
  Sender: FDA-Public Use
  Company Number: US-MYLANLABS-2017M1007655

PATIENT
  Age: 64 Year
  Sex: Male
  Weight: 115 kg

DRUGS (21)
  1. CARBOPLATIN. [Suspect]
     Active Substance: CARBOPLATIN
     Indication: DIFFUSE LARGE B-CELL LYMPHOMA
     Dosage: 453 MG, UNK
     Route: 042
     Dates: start: 20161125
  2. IFOSFAMIDE. [Suspect]
     Active Substance: IFOSFAMIDE
     Dosage: 12200 MG, ONCE
     Route: 042
     Dates: start: 20170108
  3. METOPROLOL. [Concomitant]
     Active Substance: METOPROLOL
     Indication: PRODUCT USED FOR UNKNOWN INDICATION
     Dosage: UNK
     Dates: start: 20161218, end: 20170111
  4. ETOPOSIDE. [Suspect]
     Active Substance: ETOPOSIDE
     Indication: DIFFUSE LARGE B-CELL LYMPHOMA
     Dosage: 245 MG, UNK
     Route: 042
     Dates: start: 20161123, end: 20161216
  5. IFOSFAMIDE. [Suspect]
     Active Substance: IFOSFAMIDE
     Dosage: 12250 MG, ONCE
     Route: 042
     Dates: start: 20161217, end: 20170105
  6. CARBOPLATIN. [Suspect]
     Active Substance: CARBOPLATIN
     Dosage: 510 MG, ONCE
     Route: 042
     Dates: start: 20161217, end: 20170105
  7. CARBOPLATIN. [Suspect]
     Active Substance: CARBOPLATIN
     Dosage: UNK
     Route: 042
     Dates: start: 20161216, end: 20161218
  8. CARBOPLATIN. [Suspect]
     Active Substance: CARBOPLATIN
     Dosage: UNK
  9. RITUXIMAB. [Suspect]
     Active Substance: RITUXIMAB
     Dosage: 900 MG, ONCE
     Route: 042
     Dates: start: 20161122, end: 20161212
  10. ETOPOSIDE. [Suspect]
     Active Substance: ETOPOSIDE
     Dosage: 240 MG, QD, X 3DOSES
     Route: 042
     Dates: start: 20161218
  11. CARBOPLATIN. [Suspect]
     Active Substance: CARBOPLATIN
     Dosage: 510 MG, ONCE
     Route: 042
     Dates: start: 20170117
  12. RITUXIMAB. [Suspect]
     Active Substance: RITUXIMAB
     Indication: DIFFUSE LARGE B-CELL LYMPHOMA
     Dosage: 900 MG, ONCE
     Route: 042
     Dates: start: 20161121
  13. RITUXIMAB. [Suspect]
     Active Substance: RITUXIMAB
     Dosage: 900 MG, ONCE
     Route: 042
     Dates: start: 20161214
  14. IFOSFAMIDE. [Suspect]
     Active Substance: IFOSFAMIDE
     Dosage: UNK
     Route: 042
     Dates: start: 20161216, end: 20161218
  15. CARBOPLATIN. [Suspect]
     Active Substance: CARBOPLATIN
     Dosage: 510 MG, ONCE
     Route: 042
     Dates: start: 20170108, end: 20170109
  16. IFOSFAMIDE. [Suspect]
     Active Substance: IFOSFAMIDE
     Indication: DIFFUSE LARGE B-CELL LYMPHOMA
     Dosage: 12250 MG, ONCE
     Route: 042
     Dates: start: 20161125, end: 20170109
  17. IFOSFAMIDE. [Suspect]
     Active Substance: IFOSFAMIDE
     Dosage: 12100 MG, ONCE
     Route: 042
     Dates: start: 20160117
  18. RITUXIMAB. [Suspect]
     Active Substance: RITUXIMAB
     Dosage: 910 MG, ONCE
     Route: 042
     Dates: start: 20170103
  19. ETOPOSIDE. [Suspect]
     Active Substance: ETOPOSIDE
     Dosage: 245 MG, UNK
     Route: 042
     Dates: end: 20170105
  20. ETOPOSIDE. [Suspect]
     Active Substance: ETOPOSIDE
     Dosage: 240 MG, QD, X 3DOSES
     Route: 042
     Dates: start: 20170107, end: 20170109
  21. FUROSEMIDE. [Concomitant]
     Active Substance: FUROSEMIDE
     Indication: PRODUCT USED FOR UNKNOWN INDICATION
     Dosage: UNK
     Dates: start: 19951101, end: 20170112

REACTIONS (4)
  - Atrial flutter [Recovered/Resolved]
  - Pulmonary oedema [Recovered/Resolved]
  - Febrile neutropenia [Recovered/Resolved]
  - Atrial fibrillation [Recovered/Resolved]

NARRATIVE: CASE EVENT DATE: 20161212
